FAERS Safety Report 7790511-3 (Version None)
Quarter: 2011Q3

REPORT INFORMATION
  Report Type: 
  Country: None (occurrence: None)
  Receive Date: 20110930
  Receipt Date: 20110921
  Transmission Date: 20111222
  Serious: Yes (Other)
  Sender: FDA-Public Use
  Company Number: CN-JNJFOC-20110910366

PATIENT
  Age: 2 Month
  Sex: Female
  Weight: 4.5 kg

DRUGS (1)
  1. ANTUSS INFANTS DECONGESTANT + COUGH [Suspect]
     Indication: NASOPHARYNGITIS
     Route: 048
     Dates: start: 20110920, end: 20110920

REACTIONS (3)
  - DYSPHORIA [None]
  - INSOMNIA [None]
  - AGITATION [None]
